FAERS Safety Report 7337805-3 (Version None)
Quarter: 2011Q1

REPORT INFORMATION
  Report Type: 
  Country: None (occurrence: None)
  Receive Date: 20110303
  Receipt Date: 20110303
  Transmission Date: 20110831
  Serious: Yes (Other)
  Sender: FDA-Public Use
  Company Number: None

PATIENT
  Age: 66 Year
  Sex: Male
  Weight: 68.9467 kg

DRUGS (1)
  1. KETOCONAZOLE [Suspect]
     Indication: ONYCHOMYCOSIS
     Dosage: 2SMALL SQUEEZES PER NAIL DAILY TWICE DAILY
     Dates: start: 20100302, end: 20110302

REACTIONS (1)
  - DRUG EFFECT DECREASED [None]
